FAERS Safety Report 5357622-3 (Version None)
Quarter: 2007Q2

REPORT INFORMATION
  Report Type: 
  Country: None (occurrence: None)
  Receive Date: 20070614
  Receipt Date: 20070604
  Transmission Date: 20071010
  Serious: Yes (Other)
  Sender: FDA-Public Use
  Company Number: US-PFIZER INC-2007000747

PATIENT
  Sex: Female
  Weight: 83.9 kg

DRUGS (5)
  1. LIPITOR [Suspect]
     Indication: BLOOD CHOLESTEROL INCREASED
     Dosage: DAILY DOSE:10MG
  2. ZOLOFT [Suspect]
     Indication: DEPRESSION
  3. ZOLOFT [Suspect]
     Indication: ANXIETY
  4. TRICOR [Suspect]
  5. CLONAZEPAM [Concomitant]
     Dosage: DAILY DOSE:2MG

REACTIONS (9)
  - ALOPECIA [None]
  - ASTHENIA [None]
  - COLON CANCER [None]
  - COLONIC POLYP [None]
  - FATIGUE [None]
  - MYALGIA [None]
  - MYOPATHY [None]
  - PAIN IN EXTREMITY [None]
  - WEIGHT INCREASED [None]
